FAERS Safety Report 14646348 (Version 1)
Quarter: 2018Q1

REPORT INFORMATION
  Report Type: Spontaneous
  Country: IL (occurrence: IL)
  Receive Date: 20180316
  Receipt Date: 20180316
  Transmission Date: 20180509
  Serious: Yes (Hospitalization)
  Sender: FDA-Public Use
  Company Number: IL-ORPHAN EUROPE-2043884

PATIENT
  Age: 17 Year
  Sex: Male

DRUGS (2)
  1. CARBAGLU [Suspect]
     Active Substance: CARGLUMIC ACID
     Indication: N-ACETYLGLUTAMATE SYNTHASE DEFICIENCY
  2. CARBAGLU [Suspect]
     Active Substance: CARGLUMIC ACID

REACTIONS (1)
  - Hospitalisation [Unknown]
